FAERS Safety Report 7166618-0 (Version None)
Quarter: 2010Q4

REPORT INFORMATION
  Report Type: 
  Country: None (occurrence: None)
  Receive Date: 20101216
  Receipt Date: 20101207
  Transmission Date: 20110411
  Serious: No
  Sender: FDA-Public Use
  Company Number: BE-PFIZER INC-BE-WYE-H18507710

PATIENT
  Sex: Female

DRUGS (1)
  1. PANTOPRAZOLE SODIUM [Suspect]
     Dosage: UNK
     Route: 048

REACTIONS (5)
  - HYPERSENSITIVITY [None]
  - HYPOTENSION [None]
  - LIP SWELLING [None]
  - RASH [None]
  - RESPIRATORY DEPRESSION [None]
